FAERS Safety Report 20051760 (Version 3)
Quarter: 2021Q4

REPORT INFORMATION
  Report Type: Other
  Country: GB (occurrence: GB)
  Receive Date: 20211110
  Receipt Date: 20211123
  Transmission Date: 20220303
  Serious: Yes (Other)
  Sender: FDA-Public Use
  Company Number: GB-CELLTRION INC.-2021GB014987

PATIENT

DRUGS (6)
  1. INFLIXIMAB [Suspect]
     Active Substance: INFLIXIMAB
     Indication: Product used for unknown indication
     Dosage: 425 MG
     Route: 042
     Dates: start: 20200202
  2. INFLIXIMAB [Suspect]
     Active Substance: INFLIXIMAB
     Dosage: 425 MG
     Route: 042
     Dates: start: 20200202
  3. SODIUM CHLORIDE [Suspect]
     Active Substance: SODIUM CHLORIDE
     Indication: Medication dilution
     Dosage: UNK (PHARMACEUTICAL DOSE FORM: 230)
     Route: 042
     Dates: start: 20200202
  4. SODIUM CHLORIDE [Suspect]
     Active Substance: SODIUM CHLORIDE
     Dosage: UNK (PHARMACEUTICAL DOSE FORM: 230)
     Route: 042
     Dates: start: 20200202
  5. WATER [Suspect]
     Active Substance: WATER
     Indication: Medication dilution
     Dosage: UNK (PHARMACEUTICAL DOSE FORM: 236)
     Route: 042
     Dates: start: 20200202
  6. WATER [Suspect]
     Active Substance: WATER
     Dosage: UNK (PHARMACEUTICAL DOSE FORM: 236)
     Route: 042
     Dates: start: 20200202

REACTIONS (1)
  - Haematochezia [Recovering/Resolving]
